FAERS Safety Report 18270409 (Version 1)
Quarter: 2020Q3

REPORT INFORMATION
  Report Type: Spontaneous
  Country: US (occurrence: US)
  Receive Date: 20200916
  Receipt Date: 20200916
  Transmission Date: 20201103
  Serious: No
  Sender: FDA-Public Use
  Company Number: US-TEVA-2020-US-1828024

PATIENT
  Sex: Female

DRUGS (1)
  1. DESIPRAMINE TEVA [Suspect]
     Active Substance: DESIPRAMINE HYDROCHLORIDE
     Indication: DEPRESSION
     Dosage: 25 MG, 25 ML
     Route: 065
     Dates: start: 2020

REACTIONS (3)
  - Drug ineffective [Unknown]
  - Negative thoughts [Unknown]
  - Product substitution issue [Unknown]

NARRATIVE: CASE EVENT DATE: 2020
